FAERS Safety Report 18441445 (Version 2)
Quarter: 2020Q4

REPORT INFORMATION
  Report Type: Spontaneous
  Country: JP (occurrence: JP)
  Receive Date: 20201029
  Receipt Date: 20201212
  Transmission Date: 20210114
  Serious: Yes (Disabling, Other)
  Sender: FDA-Public Use
  Company Number: JP-JNJFOC-20201038860

PATIENT
  Age: 92 Year
  Sex: Male
  Weight: 59.4 kg

DRUGS (9)
  1. MIYA-BM [Concomitant]
     Active Substance: CLOSTRIDIUM BUTYRICUM SPORES STRAIN M-55
     Indication: CONSTIPATION
     Dosage: DAILY DOSE 3 DF
  2. BUPLEURI TSUMURA [Concomitant]
     Indication: DEMENTIA
     Dosage: DAILY DOSE 7.5 G
  3. MAGNESIUM OXIDE. [Concomitant]
     Active Substance: MAGNESIUM OXIDE
     Indication: CONSTIPATION
     Dosage: DAILY DOSE 660 MG
  4. CLOPIDOGREL [Suspect]
     Active Substance: CLOPIDOGREL BISULFATE
     Indication: CEREBRAL INFARCTION
     Dosage: DAILY DOSE 75 MG
     Route: 048
  5. ATORVASTATIN [Concomitant]
     Active Substance: ATORVASTATIN
     Indication: DYSLIPIDAEMIA
     Dosage: DAILY DOSE 10 MG
  6. REMINYL [Concomitant]
     Active Substance: GALANTAMINE
     Indication: DEMENTIA
     Dosage: DAILY DOSE 16 MG
  7. QUETIAPINE. [Concomitant]
     Active Substance: QUETIAPINE
     Indication: DEMENTIA
     Dosage: DAILY DOSE 125 MG
  8. RIVAROXABAN [Suspect]
     Active Substance: RIVAROXABAN
     Indication: ATRIAL FIBRILLATION
     Dosage: DAILY DOSE 10 MG
     Route: 048
     Dates: end: 20200313
  9. NIFEDIPINE L [Concomitant]
     Active Substance: NIFEDIPINE
     Indication: HYPERTENSION
     Dosage: DAILY DOSE 10 MG

REACTIONS (2)
  - Cerebral infarction [Recovered/Resolved with Sequelae]
  - Hemiplegia [Unknown]

NARRATIVE: CASE EVENT DATE: 20200313
